FAERS Safety Report 7930896-8 (Version None)
Quarter: 2011Q4

REPORT INFORMATION
  Report Type: 
  Country: None (occurrence: None)
  Receive Date: 20111121
  Receipt Date: 20110706
  Transmission Date: 20120403
  Serious: Yes (Death, Hospitalization)
  Sender: FDA-Public Use
  Company Number: PHHY2011JP55866

PATIENT
  Sex: Female

DRUGS (3)
  1. TEGRETOL [Suspect]
     Indication: CONVULSION
     Dosage: 800 MG, DAILY
     Route: 048
     Dates: start: 20100601, end: 20100728
  2. DIAZEPAM [Concomitant]
     Indication: CONVULSION
     Dosage: 12 MG, UNK
     Route: 048
     Dates: start: 20100706, end: 20100802
  3. LEVOFLOXACIN [Concomitant]
     Indication: CONJUNCTIVITIS
     Dosage: 4 GTT, UNK
     Route: 048
     Dates: start: 20091110, end: 20100529

REACTIONS (12)
  - CONVULSION [None]
  - DRUG RASH WITH EOSINOPHILIA AND SYSTEMIC SYMPTOMS [None]
  - ECZEMA [None]
  - VOMITING [None]
  - RALES [None]
  - ERYTHEMA [None]
  - PYREXIA [None]
  - DRUG ERUPTION [None]
  - DIARRHOEA [None]
  - HEPATIC FUNCTION ABNORMAL [None]
  - LYMPHOCYTE STIMULATION TEST POSITIVE [None]
  - PNEUMONIA [None]
